FAERS Safety Report 4956115-2 (Version None)
Quarter: 2006Q1

REPORT INFORMATION
  Report Type: 
  Country: None (occurrence: None)
  Receive Date: 20060201
  Receipt Date: 20051109
  Transmission Date: 20060701
  Serious: No
  Sender: FDA-Public Use
  Company Number: 2005PV004433

PATIENT
  Age: 57 Year
  Sex: Female
  Weight: 98.8842 kg

DRUGS (6)
  1. BYETTA [Suspect]
     Indication: DIABETES MELLITUS NON-INSULIN-DEPENDENT
     Dosage: 5 MCG;BID;SC
     Route: 058
     Dates: start: 20051028
  2. METFORMIN [Concomitant]
  3. AMARYL [Concomitant]
  4. PRINIVIL [Concomitant]
  5. ESTRACE [Concomitant]
  6. HYDROCHLOROTHIAZIDE [Concomitant]

REACTIONS (5)
  - CRYING [None]
  - DEPRESSION [None]
  - IMPATIENCE [None]
  - IRRITABILITY [None]
  - WEIGHT DECREASED [None]
